FAERS Safety Report 7703300-2 (Version None)
Quarter: 2011Q3

REPORT INFORMATION
  Report Type: 
  Country: None (occurrence: None)
  Receive Date: 20110823
  Receipt Date: 20110810
  Transmission Date: 20111222
  Serious: Yes (Death)
  Sender: FDA-Public Use
  Company Number: US-ELI_LILLY_AND_COMPANY-US201108003464

PATIENT
  Age: 8 Year
  Sex: Male

DRUGS (5)
  1. ANALGESICS [Concomitant]
  2. CYMBALTA [Suspect]
     Dosage: UNK, UNKNOWN
  3. MUSCLE RELAXANTS [Concomitant]
  4. TYLENOL                                 /SCH/ [Concomitant]
  5. ANTIPSYCHOTICS [Concomitant]

REACTIONS (1)
  - POISONING [None]
